FAERS Safety Report 6737641-2 (Version None)
Quarter: 2010Q2

REPORT INFORMATION
  Report Type: 
  Country: None (occurrence: None)
  Receive Date: 20100521
  Receipt Date: 20100521
  Transmission Date: 20101027
  Serious: Yes (Disabling)
  Sender: FDA-Public Use
  Company Number: None

PATIENT
  Age: 76 Year
  Sex: Male
  Weight: 77.1115 kg

DRUGS (1)
  1. TOBREX [Suspect]
     Indication: CONJUNCTIVITIS
     Dosage: 1 DROP QID INTRAOCULAR
     Route: 031
     Dates: start: 20100421, end: 20100428

REACTIONS (8)
  - DOCUMENTED HYPERSENSITIVITY TO ADMINISTERED DRUG [None]
  - DRUG PRESCRIBING ERROR [None]
  - DRY EYE [None]
  - EYE PAIN [None]
  - OCULAR HYPERAEMIA [None]
  - REACTION TO PRESERVATIVES [None]
  - VISION BLURRED [None]
  - VISUAL ACUITY REDUCED [None]
